FAERS Safety Report 12195633 (Version 1)
Quarter: 2016Q1

REPORT INFORMATION
  Report Type: Spontaneous
  Country: US (occurrence: US)
  Receive Date: 20160321
  Receipt Date: 20160321
  Transmission Date: 20160526
  Serious: Yes (Other)
  Sender: FDA-Public Use
  Company Number: US-MEDTRONIC-1049365

PATIENT
  Age: 23 Year
  Sex: Male

DRUGS (3)
  1. BOTOX [Suspect]
     Active Substance: ONABOTULINUMTOXINA
     Route: 030
  2. ALCOHOL BLOCKS [Suspect]
     Active Substance: ALCOHOL
  3. LIORESAL [Suspect]
     Active Substance: BACLOFEN
     Indication: MOVEMENT DISORDER
     Route: 037

REACTIONS (11)
  - Therapeutic response decreased [Unknown]
  - Muscle tightness [Unknown]
  - Stress [Unknown]
  - Drug hypersensitivity [Unknown]
  - Screaming [Unknown]
  - Insomnia [Unknown]
  - Feeling abnormal [Unknown]
  - Agitation [Unknown]
  - Movement disorder [Unknown]
  - Muscle spasticity [Unknown]
  - Hypertonia [Unknown]

NARRATIVE: CASE EVENT DATE: 2015
